FAERS Safety Report 10306200 (Version 2)
Quarter: 2014Q3

REPORT INFORMATION
  Report Type: Spontaneous
  Country: JP (occurrence: JP)
  Receive Date: 20140715
  Receipt Date: 20140721
  Transmission Date: 20150326
  Serious: Yes (Other)
  Sender: FDA-Public Use
  Company Number: JP-009507513-1407JPN006325

PATIENT
  Age: 21 Year
  Sex: Male

DRUGS (1)
  1. SINGULAIR [Suspect]
     Active Substance: MONTELUKAST SODIUM
     Dosage: DAILY DOSAGE UNKNOWN
     Route: 048
     Dates: start: 201309, end: 201309

REACTIONS (1)
  - Oculomucocutaneous syndrome [Unknown]
